FAERS Safety Report 4420816-5 (Version None)
Quarter: 2004Q3

REPORT INFORMATION
  Report Type: 
  Country: None (occurrence: None)
  Receive Date: 20040809
  Receipt Date: 20040608
  Transmission Date: 20050211
  Serious: No
  Sender: FDA-Public Use
  Company Number: US-GLAXOSMITHKLINE-A0513777A

PATIENT
  Age: 66 Year
  Sex: Female

DRUGS (5)
  1. PAXIL [Suspect]
     Indication: DEPRESSION
     Dosage: 20MG PER DAY
     Route: 048
  2. GLUCOPHAGE [Concomitant]
  3. AVANDIA [Concomitant]
  4. XANAX [Concomitant]
  5. INSULIN [Concomitant]

REACTIONS (1)
  - ALOPECIA [None]
